FAERS Safety Report 15989615 (Version 1)
Quarter: 2019Q1

REPORT INFORMATION
  Report Type: Spontaneous
  Country: US (occurrence: US)
  Receive Date: 20190221
  Receipt Date: 20190221
  Transmission Date: 20190418
  Serious: Yes (Other)
  Sender: FDA-Public Use
  Company Number: US-PFIZER INC-2019076472

PATIENT
  Age: 67 Year
  Sex: Female

DRUGS (2)
  1. IDARUBICIN HCL [Suspect]
     Active Substance: IDARUBICIN HYDROCHLORIDE
     Dosage: UNK [LOW DOSE CYTARABINE AND IDARUBICIN GIVEN THE CLASSIC ^7+3^ SCHEDULE]
  2. CYTARABINE. [Suspect]
     Active Substance: CYTARABINE
     Dosage: UNK [LOW DOSE CYTARABINE AND IDARUBICIN GIVEN THE CLASSIC ^7+3^ SCHEDULE]

REACTIONS (2)
  - Febrile neutropenia [Unknown]
  - Cytopenia [Unknown]
